FAERS Safety Report 7805508-4 (Version None)
Quarter: 2011Q4

REPORT INFORMATION
  Report Type: 
  Country: None (occurrence: None)
  Receive Date: 20111010
  Receipt Date: 20111004
  Transmission Date: 20120403
  Serious: Yes (Other)
  Sender: FDA-Public Use
  Company Number: PHEH2011US04025

PATIENT
  Sex: Female

DRUGS (10)
  1. TOPAMAX [Concomitant]
  2. ASPIRIN [Concomitant]
  3. ZETIA [Concomitant]
  4. CALCIUM CARBONATE [Concomitant]
  5. BONIVA [Suspect]
     Dosage: UNK UKN, UNK
     Dates: start: 20080227
  6. LEVOTHROID [Concomitant]
  7. VITAMINE C [Concomitant]
  8. VITAMIN D [Concomitant]
  9. RECLAST [Suspect]
     Dosage: UNK UKN, UNK
     Route: 042
     Dates: start: 20100401
  10. FLOVENT [Concomitant]

REACTIONS (1)
  - DENTAL CARIES [None]
